FAERS Safety Report 4662279-0 (Version None)
Quarter: 2005Q2

REPORT INFORMATION
  Report Type: 
  Country: None (occurrence: None)
  Receive Date: 20050516
  Receipt Date: 20050502
  Transmission Date: 20051028
  Serious: Yes (Other)
  Sender: FDA-Public Use
  Company Number: FR-JNJFOC-20050500453

PATIENT
  Age: 4 Year
  Sex: Female
  Weight: 11 kg

DRUGS (3)
  1. EPITOMAX [Suspect]
     Indication: ENCEPHALOPATHY
     Route: 049
     Dates: start: 20041001
  2. LAMICTAL [Concomitant]
     Route: 065
  3. SABRIL [Concomitant]
     Route: 065

REACTIONS (2)
  - CRYSTAL URINE [None]
  - WEIGHT DECREASED [None]
